FAERS Safety Report 9049971 (Version 2)
Quarter: 2013Q1

REPORT INFORMATION
  Report Type: Spontaneous
  Country: US (occurrence: US)
  Receive Date: 20130205
  Receipt Date: 20130227
  Transmission Date: 20140127
  Serious: Yes (Death)
  Sender: FDA-Public Use
  Company Number: US-ELI_LILLY_AND_COMPANY-US201301009109

PATIENT
  Sex: Female
  Weight: 66.21 kg

DRUGS (14)
  1. FORTEO [Suspect]
     Indication: OSTEOPOROSIS
     Dosage: 20 UG, QD
     Route: 058
     Dates: start: 20120229
  2. CALCIUM CITRATE [Concomitant]
  3. MULTIVITAMIN [Concomitant]
  4. VITAMIN D3 [Concomitant]
  5. OMEPRAZOLE [Concomitant]
  6. FLORAJEN 3 [Concomitant]
  7. STOOL SOFTENER [Concomitant]
  8. OCUVITE [Concomitant]
  9. ASPIRIN [Concomitant]
  10. CITRUCEL [Concomitant]
  11. MIRALAX [Concomitant]
  12. IPRATROPIUM BROMIDE [Concomitant]
  13. ALBUTEROL [Concomitant]
  14. TRAMADOL [Concomitant]

REACTIONS (1)
  - Death [Fatal]
